FAERS Safety Report 16674547 (Version 2)
Quarter: 2022Q2

REPORT INFORMATION
  Report Type: Spontaneous
  Country: US (occurrence: US)
  Receive Date: 20190806
  Receipt Date: 20220617
  Transmission Date: 20220721
  Serious: No
  Sender: FDA-Public Use
  Company Number: US-ALNYLAM PHARMACEUTICALS, INC.-ALN-2019-000527

PATIENT

DRUGS (1)
  1. ONPATTRO [Suspect]
     Active Substance: PATISIRAN SODIUM
     Indication: Hereditary neuropathic amyloidosis
     Dosage: UNK, Q3W, WEIGHT BASE DOSING
     Route: 042
     Dates: start: 20190514

REACTIONS (4)
  - Back pain [Unknown]
  - Spinal stenosis [Unknown]
  - Back pain [Unknown]
  - Hypoaesthesia [Unknown]
